FAERS Safety Report 4299881-4 (Version None)
Quarter: 2004Q1

REPORT INFORMATION
  Report Type: 
  Country: None (occurrence: None)
  Receive Date: 20040219
  Receipt Date: 20040219
  Transmission Date: 20041129
  Serious: Yes (Hospitalization)
  Sender: FDA-Public Use
  Company Number: None

PATIENT
  Age: 77 Year
  Sex: Male

DRUGS (9)
  1. CARVEDILOL [Suspect]
     Indication: HYPERTENSION
     Dosage: 6.25 MG PO BID
     Route: 048
  2. DIGOXIN [Suspect]
     Indication: ATRIAL FIBRILLATION
     Dosage: 0.125 MG PO BID
     Route: 048
  3. LASIX [Suspect]
     Indication: HYPERTENSION
     Dosage: 20 MG QD
  4. LISINOPRIL [Suspect]
     Indication: CORONARY ARTERY DISEASE
     Dosage: 10 MG QD
  5. ALLOPURINOL [Concomitant]
  6. COLCHICINE [Concomitant]
  7. NITROGLYCERIN [Concomitant]
  8. COUMADIN [Concomitant]
  9. SIMVASTATIN [Concomitant]

REACTIONS (5)
  - ASTHENIA [None]
  - BRADYCARDIA [None]
  - DRUG LEVEL INCREASED [None]
  - FATIGUE [None]
  - VISION BLURRED [None]
